FAERS Safety Report 17605768 (Version 1)
Quarter: 2020Q1

REPORT INFORMATION
  Report Type: Spontaneous
  Country: GB (occurrence: GB)
  Receive Date: 20200331
  Receipt Date: 20200331
  Transmission Date: 20200409
  Serious: Yes (Other)
  Sender: FDA-Public Use
  Company Number: GB-JNJFOC-20200331856

PATIENT
  Age: 75 Year
  Sex: Male
  Weight: 83 kg

DRUGS (7)
  1. MEMANTINE. [Concomitant]
     Active Substance: MEMANTINE
     Dates: start: 20190820
  2. RIVAROXABAN [Suspect]
     Active Substance: RIVAROXABAN
     Indication: PRODUCT USED FOR UNKNOWN INDICATION
     Route: 048
     Dates: start: 20191120
  3. FUROSEMIDE. [Concomitant]
     Active Substance: FUROSEMIDE
     Dosage: MORNING
     Dates: start: 20191223
  4. CO-AMOXICLAVE [Concomitant]
     Active Substance: AMOXICILLIN\CLAVULANATE POTASSIUM
     Indication: SKIN INFECTION
     Dates: start: 20200228
  5. BISOPROLOL [Concomitant]
     Active Substance: BISOPROLOL
     Dosage: MORNING
     Dates: start: 20191223
  6. RISPERIDONE. [Concomitant]
     Active Substance: RISPERIDONE
     Dosage: AS DIRECTED
     Dates: start: 20200211
  7. FLUCLOXACILLIN [Concomitant]
     Active Substance: FLUCLOXACILLIN
     Indication: SKIN INFECTION
     Dates: start: 20200220, end: 20200227

REACTIONS (3)
  - Drug ineffective [Unknown]
  - Deep vein thrombosis [Recovered/Resolved]
  - Pulmonary embolism [Recovered/Resolved]

NARRATIVE: CASE EVENT DATE: 20200303
